FAERS Safety Report 11838337 (Version 1)
Quarter: 2015Q4

REPORT INFORMATION
  Report Type: Spontaneous
  Country: US (occurrence: US)
  Receive Date: 20151215
  Receipt Date: 20151215
  Transmission Date: 20160305
  Serious: No
  Sender: FDA-Public Use
  Company Number: US-ACTELION PHARMACEUTICALS US, INC.-A-NJ2014-110913

PATIENT
  Age: 55 Year
  Sex: Male

DRUGS (3)
  1. VELETRI [Suspect]
     Active Substance: EPOPROSTENOL
     Indication: PULMONARY ARTERIAL HYPERTENSION
     Dosage: 37.5 NG/KG, PER MIN
     Route: 042
     Dates: start: 20140224
  2. VELETRI [Suspect]
     Active Substance: EPOPROSTENOL
     Dosage: 37.1 NG/KG, PER MIN
     Route: 041
  3. VELETRI [Suspect]
     Active Substance: EPOPROSTENOL
     Dosage: 36.6 NG/KG, PER MIN
     Route: 042

REACTIONS (11)
  - Ear infection [Unknown]
  - Device damage [Unknown]
  - Pain in jaw [Unknown]
  - Rash [Unknown]
  - Orchitis [Unknown]
  - Catheter site swelling [Unknown]
  - Catheter site erythema [Unknown]
  - Fungal infection [Unknown]
  - Catheter site inflammation [Unknown]
  - Catheter site infection [Unknown]
  - Staphylococcal infection [Unknown]

NARRATIVE: CASE EVENT DATE: 20141227
